FAERS Safety Report 7709573-4 (Version None)
Quarter: 2011Q3

REPORT INFORMATION
  Report Type: 
  Country: None (occurrence: None)
  Receive Date: 20110825
  Receipt Date: 20110819
  Transmission Date: 20111222
  Serious: Yes (Disabling, Other)
  Sender: FDA-Public Use
  Company Number: GB-TEVA-297634ISR

PATIENT
  Age: 49 Year
  Sex: Male

DRUGS (2)
  1. LINEZOLID [Suspect]
     Indication: DEVICE RELATED INFECTION
     Dosage: 1200 MILLIGRAM;
     Route: 042
     Dates: start: 20110728, end: 20110805
  2. TRAMADOL HCL [Suspect]
     Indication: PAIN
     Route: 048
     Dates: start: 20110720, end: 20110804

REACTIONS (8)
  - HALLUCINATIONS, MIXED [None]
  - ANAEMIA [None]
  - ABNORMAL BEHAVIOUR [None]
  - PANCYTOPENIA [None]
  - AGGRESSION [None]
  - PARANOIA [None]
  - PSYCHOTIC BEHAVIOUR [None]
  - THROMBOCYTOPENIA [None]
